FAERS Safety Report 4802494-6 (Version None)
Quarter: 2005Q4

REPORT INFORMATION
  Report Type: 
  Country: None (occurrence: None)
  Receive Date: 20051013
  Receipt Date: 20051003
  Transmission Date: 20060501
  Serious: Yes (Other)
  Sender: FDA-Public Use
  Company Number: HQWYE834005OCT05

PATIENT
  Age: 57 Year
  Sex: Female
  Weight: 124.85 kg

DRUGS (1)
  1. PROTONIX [Suspect]
     Indication: PROPHYLAXIS
     Dosage: 40 MG 1X PER 1 DAY
     Dates: start: 20050802, end: 20050901

REACTIONS (5)
  - DIARRHOEA [None]
  - DRUG DEPENDENCE [None]
  - DRUG WITHDRAWAL SYNDROME [None]
  - STOMACH DISCOMFORT [None]
  - VOMITING [None]
